FAERS Safety Report 6587889-5 (Version None)
Quarter: 2010Q1

REPORT INFORMATION
  Report Type: 
  Country: None (occurrence: None)
  Receive Date: 20100217
  Receipt Date: 20100217
  Transmission Date: 20100710
  Serious: No
  Sender: FDA-Public Use
  Company Number: None

PATIENT
  Sex: Female
  Weight: 101.1521 kg

DRUGS (1)
  1. PREVACID [Suspect]
     Dosage: 30 MG QAM AC P.O.
     Route: 048

REACTIONS (1)
  - TREATMENT FAILURE [None]
